FAERS Safety Report 5158328-6 (Version None)
Quarter: 2006Q4

REPORT INFORMATION
  Report Type: 
  Country: None (occurrence: None)
  Receive Date: 20061128
  Receipt Date: 20061117
  Transmission Date: 20070319
  Serious: Yes (Hospitalization)
  Sender: FDA-Public Use
  Company Number: FR-JNJFOC-20061103895

PATIENT
  Age: 85 Year
  Sex: Female

DRUGS (11)
  1. OFLOCET [Suspect]
     Indication: URINARY TRACT INFECTION
     Route: 048
  2. BACTRIM [Suspect]
     Indication: URINARY TRACT INFECTION
     Route: 048
  3. LYRICA [Suspect]
     Indication: DRUG USE FOR UNKNOWN INDICATION
     Route: 048
     Dates: start: 20060923, end: 20061002
  4. SKENAN [Concomitant]
     Indication: PAIN
     Route: 065
  5. FORLAX [Concomitant]
     Indication: CONSTIPATION
     Route: 065
  6. DEROXAT [Concomitant]
     Indication: ANXIETY
     Route: 065
  7. CELECTOL [Concomitant]
     Route: 065
  8. SOLUPRED [Concomitant]
     Route: 065
  9. LANZOR [Concomitant]
     Route: 065
  10. NEURONTIN [Concomitant]
     Route: 048
  11. SPASFON [Concomitant]
     Route: 065

REACTIONS (5)
  - AGITATION [None]
  - CONFUSIONAL STATE [None]
  - DYSKINESIA [None]
  - MYOCLONUS [None]
  - VISUAL FIELD DEFECT [None]
